FAERS Safety Report 24782327 (Version 1)
Quarter: 2024Q4

REPORT INFORMATION
  Report Type: Report from Study
  Country: US (occurrence: US)
  Receive Date: 20241227
  Receipt Date: 20241227
  Transmission Date: 20250114
  Serious: Yes (Hospitalization)
  Sender: BAYER HEALTHCARE PHARMACEUTICALS INC.
  Company Number: US-BAYER-2024A177373

PATIENT
  Age: 68 Year
  Sex: Male

DRUGS (3)
  1. STIVARGA [Suspect]
     Active Substance: REGORAFENIB MONOHYDRATE
     Indication: Metastases to liver
     Dosage: 160 MG, QD ON DAYS 1-21 OF A 28 DAY CYCLE
     Route: 048
     Dates: start: 20241104, end: 202412
  2. STIVARGA [Suspect]
     Active Substance: REGORAFENIB MONOHYDRATE
     Indication: Cholangiocarcinoma
  3. STIVARGA [Suspect]
     Active Substance: REGORAFENIB MONOHYDRATE
     Indication: Hepatocellular carcinoma

REACTIONS (2)
  - Ocular icterus [Unknown]
  - Hepatic function abnormal [Unknown]
